FAERS Safety Report 8247042-6 (Version None)
Quarter: 2012Q1

REPORT INFORMATION
  Report Type: 
  Country: None (occurrence: None)
  Receive Date: 20120330
  Receipt Date: 20120316
  Transmission Date: 20120608
  Serious: Yes (Hospitalization)
  Sender: FDA-Public Use
  Company Number: US-ROCHE-1039473

PATIENT
  Sex: Female
  Weight: 44.8 kg

DRUGS (11)
  1. GABAPENTIN [Concomitant]
  2. VALTREX [Concomitant]
  3. PERIDEX [Concomitant]
  4. COMPAZINE [Concomitant]
  5. MLN8237 [Suspect]
     Dosage: DOSE REDUCED
     Route: 048
     Dates: start: 20120206, end: 20120212
  6. LEVAQUIN [Concomitant]
  7. CYMBALTA [Concomitant]
  8. DURAGESIC-100 [Concomitant]
  9. HYDROCODONE BITARTRATE AND ACETAMINOPHEN [Concomitant]
  10. MABTHERA [Suspect]
     Indication: DIFFUSE LARGE B-CELL LYMPHOMA
     Dosage: FREQUENCY: CYCLIC
     Route: 042
     Dates: start: 20120103, end: 20120206
  11. MLN8237 [Suspect]
     Indication: DIFFUSE LARGE B-CELL LYMPHOMA
     Route: 048
     Dates: start: 20120103

REACTIONS (4)
  - PRESYNCOPE [None]
  - DYSPNOEA [None]
  - HYPOKALAEMIA [None]
  - ANAEMIA [None]
